FAERS Safety Report 6291758-8 (Version None)
Quarter: 2009Q3

REPORT INFORMATION
  Report Type: 
  Country: None (occurrence: None)
  Receive Date: 20090730
  Receipt Date: 20090720
  Transmission Date: 20100115
  Serious: Yes (Other)
  Sender: FDA-Public Use
  Company Number: US-ABBOTT-09P-163-0586399-00

PATIENT
  Sex: Male

DRUGS (11)
  1. HUMIRA [Suspect]
     Indication: CROHN'S DISEASE
     Dates: start: 20090701, end: 20090701
  2. HUMIRA [Suspect]
     Dates: start: 20090714, end: 20090714
  3. HUMIRA [Suspect]
     Dates: start: 20090715
  4. LISINOPRIL [Concomitant]
     Indication: ISCHAEMIC HEART DISEASE PROPHYLAXIS
  5. TOPROL-XL [Concomitant]
     Indication: DRUG USE FOR UNKNOWN INDICATION
  6. TRICOR [Concomitant]
     Indication: DRUG USE FOR UNKNOWN INDICATION
  7. LIPITOR [Concomitant]
     Indication: DRUG USE FOR UNKNOWN INDICATION
  8. ASPIRIN [Concomitant]
     Indication: ISCHAEMIC HEART DISEASE PROPHYLAXIS
  9. PREDNISONE TAB [Concomitant]
     Indication: GASTROINTESTINAL DISORDER
  10. XANAX [Concomitant]
     Indication: ANXIETY
  11. CORTIFOAM [Concomitant]
     Indication: ANORECTAL DISORDER
     Route: 054

REACTIONS (2)
  - BACK PAIN [None]
  - DYSPNOEA [None]
